FAERS Safety Report 8491487-6 (Version None)
Quarter: 2012Q3

REPORT INFORMATION
  Report Type: 
  Country: None (occurrence: None)
  Receive Date: 20120706
  Receipt Date: 20120702
  Transmission Date: 20120928
  Serious: Yes (Other)
  Sender: FDA-Public Use
  Company Number: US-PFIZER INC-2012158737

PATIENT
  Sex: Female

DRUGS (2)
  1. LYRICA [Suspect]
     Indication: PAIN
     Dosage: 150 MG, 3X/DAY (THREE TIMES A DAY)
     Dates: end: 20090101
  2. LYRICA [Suspect]
     Indication: HERPES ZOSTER
     Dosage: 50 MG, 3X/DAY (THREE TIMES A DAY)

REACTIONS (5)
  - MEMORY IMPAIRMENT [None]
  - TREMOR [None]
  - MENTAL IMPAIRMENT [None]
  - APPETITE DISORDER [None]
  - DYSGEUSIA [None]
